FAERS Safety Report 16776231 (Version 3)
Quarter: 2019Q3

REPORT INFORMATION
  Report Type: Spontaneous
  Country: US (occurrence: US)
  Receive Date: 20190905
  Receipt Date: 20190910
  Transmission Date: 20191005
  Serious: No
  Sender: FDA-Public Use
  Company Number: US-PFIZER INC-2019382417

PATIENT
  Age: 51 Year
  Sex: Female

DRUGS (2)
  1. RELPAX [Suspect]
     Active Substance: ELETRIPTAN HYDROBROMIDE
     Dosage: UNK
  2. AJOVY [Concomitant]
     Active Substance: FREMANEZUMAB-VFRM
     Dosage: UNK

REACTIONS (6)
  - Diarrhoea [Unknown]
  - Muscle strain [Recovered/Resolved]
  - Gait disturbance [Unknown]
  - Myalgia [Unknown]
  - Recalled product administered [Unknown]
  - Pain in extremity [Unknown]
